FAERS Safety Report 23251292 (Version 1)
Quarter: 2023Q4

REPORT INFORMATION
  Report Type: Spontaneous
  Country: US (occurrence: None)
  Receive Date: 20231130
  Receipt Date: 20231130
  Transmission Date: 20240110
  Serious: No
  Sender: FDA-Public Use
  Company Number: None

PATIENT
  Age: 58 Year
  Sex: Female
  Weight: 78.47 kg

DRUGS (9)
  1. KISQALI [Suspect]
     Active Substance: RIBOCICLIB
     Indication: Breast cancer female
     Dosage: FREQUENCY : DAILY;?
     Route: 048
     Dates: start: 20230911, end: 20230922
  2. KISQALI [Suspect]
     Active Substance: RIBOCICLIB
     Indication: Breast cancer female
  3. ATORVASTATIN CALCIUM PO [Concomitant]
  4. DEXAMETHASONE [Concomitant]
  5. ATROPINE\DIPHENOXYLATE [Concomitant]
     Active Substance: ATROPINE\DIPHENOXYLATE
  6. GLIPIZIDE [Concomitant]
     Active Substance: GLIPIZIDE
  7. LISINOPRIL [Concomitant]
  8. ONDANSETRON [Concomitant]
     Active Substance: ONDANSETRON
  9. PROCHLORPERAZINE [Concomitant]

REACTIONS (2)
  - Malignant neoplasm progression [None]
  - Breast cancer [None]

NARRATIVE: CASE EVENT DATE: 20231110
